FAERS Safety Report 19588621 (Version 1)
Quarter: 2021Q3

REPORT INFORMATION
  Report Type: Spontaneous
  Country: US (occurrence: US)
  Receive Date: 20210721
  Receipt Date: 20210721
  Transmission Date: 20211014
  Serious: No
  Sender: FDA-Public Use
  Company Number: US-LUPIN PHARMACEUTICALS INC.-2021-12316

PATIENT
  Age: 30 Year
  Sex: Female

DRUGS (6)
  1. ERTAPENEM. [Suspect]
     Active Substance: ERTAPENEM SODIUM
     Indication: AMNIOTIC CAVITY INFECTION
     Dosage: 1 GRAM, QD
     Route: 042
  2. AZITHROMYCIN ANHYDROUS. [Suspect]
     Active Substance: AZITHROMYCIN ANHYDROUS
     Indication: EVIDENCE BASED TREATMENT
     Dosage: UNK
     Route: 065
  3. AZITHROMYCIN ANHYDROUS. [Suspect]
     Active Substance: AZITHROMYCIN ANHYDROUS
     Indication: AMNIOTIC CAVITY INFECTION
     Dosage: 500 MILLIGRAM, QD
     Route: 048
  4. ACICLOVIR [Suspect]
     Active Substance: ACYCLOVIR
     Indication: HERPES SIMPLEX
     Dosage: 10 MILLIGRAM/KILOGRAM, TID
     Route: 042
  5. PIPERACILLIN/TAZOBACTAM [Suspect]
     Active Substance: PIPERACILLIN SODIUM\TAZOBACTAM SODIUM
     Indication: EVIDENCE BASED TREATMENT
     Dosage: UNK
     Route: 065
  6. NITROFURANTOIN. [Suspect]
     Active Substance: NITROFURANTOIN
     Indication: EVIDENCE BASED TREATMENT
     Dosage: UNK
     Route: 065

REACTIONS (1)
  - Maternal exposure during pregnancy [Unknown]
